FAERS Safety Report 7917481-9 (Version None)
Quarter: 2011Q4

REPORT INFORMATION
  Report Type: 
  Country: None (occurrence: None)
  Receive Date: 20111116
  Receipt Date: 20111006
  Transmission Date: 20120403
  Serious: Yes (Hospitalization)
  Sender: FDA-Public Use
  Company Number: ES-ROCHE-659717

PATIENT
  Sex: Female
  Weight: 57 kg

DRUGS (15)
  1. HERCEPTIN [Suspect]
     Dosage: MAINTENANCE DOSE: DOSE LEVEL: 6 MG/KG. DOSASGE FORM: VIALS. LAST DOSE PRIOR TO SAE: 02 SEPT. 2009
     Route: 042
     Dates: start: 20090812, end: 20090923
  2. ASPIRIN [Concomitant]
  3. AMLODIPINE [Concomitant]
  4. DIOVAN HCT [Concomitant]
     Dosage: 1 TABLET
  5. TRIMETAZIDINE [Concomitant]
  6. OMEPRAZOLE [Concomitant]
  7. HERCEPTIN [Suspect]
     Dosage: DOSE LEVEL: 6 MG/KG.
     Route: 042
  8. TRIMETAZIDINE [Concomitant]
  9. HERCEPTIN [Suspect]
     Indication: BREAST CANCER
     Dosage: LOSADING DOSE. DAY ONE OF CYCLE 1. DOSE LEVEL: 8MG/KG. (FROM PROTOCOL).
     Route: 042
     Dates: start: 20090812, end: 20090812
  10. CLONAZEPAM [Concomitant]
  11. DOCETAXEL [Suspect]
     Indication: BREAST CANCER
     Dosage: LAST DOSE PRIOR TO SAE: 2 SEPTEMBER 2009. DOSE LEVEL: 75 MG/M2. DOSAGE FORM: VIALS.
     Route: 042
     Dates: start: 20090812, end: 20090923
  12. DOCETAXEL [Suspect]
     Dosage: DOSE LEVEL 75 MG/M2
     Route: 042
  13. CARBOPLATIN [Suspect]
     Indication: BREAST CANCER
     Dosage: LAST DOSE PRIOR TO SAE: 02 SEPTEMBER 2009. DOSE LEVEL: 6 AUC.
     Route: 042
     Dates: start: 20090812, end: 20090923
  14. CARBOPLATIN [Suspect]
     Dosage: DOSE LEVEL: 6 AUC.
     Route: 042
  15. DIOVAN HCT [Concomitant]
     Dosage: DOSE:1 TABLET

REACTIONS (2)
  - NEUTROPENIA [None]
  - CONFUSIONAL STATE [None]
